FAERS Safety Report 5728244-7 (Version None)
Quarter: 2008Q2

REPORT INFORMATION
  Report Type: 
  Country: None (occurrence: None)
  Receive Date: 20080506
  Receipt Date: 20080428
  Transmission Date: 20081010
  Serious: Yes (Hospitalization, Other)
  Sender: FDA-Public Use
  Company Number: US-BAYER-200714914NA

PATIENT
  Age: 59 Year
  Sex: Female

DRUGS (18)
  1. BETASERON [Suspect]
     Indication: SECONDARY PROGRESSIVE MULTIPLE SCLEROSIS
     Dosage: TOTAL DAILY DOSE: 8 MIU
     Route: 058
  2. BETASERON [Suspect]
     Dosage: TOTAL DAILY DOSE: 4 MIU
     Route: 058
     Dates: start: 20071107
  3. BETASERON [Suspect]
     Route: 058
     Dates: start: 20070720, end: 20071107
  4. BETASERON [Suspect]
     Dosage: TOTAL DAILY DOSE: 8 MIU
     Route: 058
  5. SOLU-MEDROL [Suspect]
  6. TYLENOL [Concomitant]
     Indication: PREMEDICATION
     Dosage: AS USED: 1 DF
  7. MAGNESIUM [Concomitant]
  8. BACLOFEN [Concomitant]
  9. PREDNISONE [Concomitant]
  10. AMANTADINE HCL [Concomitant]
  11. ASPIRIN [Concomitant]
     Dosage: AS USED: 81 MG
  12. ULTRAM [Concomitant]
  13. XANAX [Concomitant]
  14. AMITIZA [Concomitant]
  15. ACIPHEX [Concomitant]
  16. POTASSIUM CHLORIDE [Concomitant]
  17. POTASSIUM CHLORIDE [Concomitant]
     Dates: start: 20070501
  18. POTASSIUM CHLORIDE [Concomitant]
     Dosage: TOTAL DAILY DOSE: 6 DF

REACTIONS (14)
  - BLOOD POTASSIUM DECREASED [None]
  - DEHYDRATION [None]
  - DYSARTHRIA [None]
  - FACIAL PALSY [None]
  - INJECTION SITE PAIN [None]
  - MULTIPLE SCLEROSIS [None]
  - MUSCULAR WEAKNESS [None]
  - NAUSEA [None]
  - PNEUMONIA [None]
  - THYROID CYST [None]
  - THYROID NEOPLASM [None]
  - ULCER HAEMORRHAGE [None]
  - VOMITING [None]
  - WEIGHT DECREASED [None]
